FAERS Safety Report 12729236 (Version 1)
Quarter: 2016Q3

REPORT INFORMATION
  Report Type: Spontaneous
  Country: NL (occurrence: NL)
  Receive Date: 20160909
  Receipt Date: 20160909
  Transmission Date: 20161109
  Serious: Yes (Other)
  Sender: FDA-Public Use
  Company Number: NL-JNJFOC-20160827545

PATIENT
  Sex: Female

DRUGS (3)
  1. 5-ASA [Concomitant]
     Active Substance: MESALAMINE
     Route: 065
  2. FOLIC ACID. [Concomitant]
     Active Substance: FOLIC ACID
     Route: 065
  3. INFLIXIMAB, RECOMBINANT [Suspect]
     Active Substance: INFLIXIMAB
     Indication: INFLAMMATORY BOWEL DISEASE
     Dosage: MEDIAN DOSE 5 MG/KG AND MEDIAN INTERVAL WAS 8 WEEKS
     Route: 042

REACTIONS (6)
  - Abortion spontaneous [Unknown]
  - Caesarean section [Unknown]
  - Premature delivery [Unknown]
  - Drug dose omission [Unknown]
  - Exposure during pregnancy [Unknown]
  - Inflammatory bowel disease [Unknown]
